FAERS Safety Report 20582755 (Version 1)
Quarter: 2022Q1

REPORT INFORMATION
  Report Type: Other
  Country: GB (occurrence: GB)
  Receive Date: 20220311
  Receipt Date: 20220311
  Transmission Date: 20220423
  Serious: Yes (Hospitalization, Other)
  Sender: FDA-Public Use
  Company Number: GB-BROWN + BURK(UK) LIMITED-ML2022-00557

PATIENT

DRUGS (1)
  1. GABAPENTIN [Suspect]
     Active Substance: GABAPENTIN
     Indication: Product used for unknown indication
     Dosage: UNK
     Route: 065

REACTIONS (9)
  - Illness [Unknown]
  - Performance status decreased [Unknown]
  - Malaise [Unknown]
  - Tremor [Unknown]
  - Asthenia [Unknown]
  - Hypertension [Unknown]
  - Vertigo [Unknown]
  - Dizziness [Unknown]
  - Fall [Unknown]
